FAERS Safety Report 6099949-6 (Version None)
Quarter: 2009Q1

REPORT INFORMATION
  Report Type: 
  Country: None (occurrence: None)
  Receive Date: 20090303
  Receipt Date: 20090226
  Transmission Date: 20090719
  Serious: Yes (Other)
  Sender: FDA-Public Use
  Company Number: JP-ASTRAZENECA-2009AP01510

PATIENT
  Age: 70 Year
  Sex: Female

DRUGS (2)
  1. DIPRIVAN [Suspect]
     Indication: SEDATION
     Dosage: 5 MG/H
     Route: 042
  2. PROTEINS, AMINO ACID AND PREPARATIONS [Suspect]
     Dosage: 80 ML/H
     Route: 042

REACTIONS (1)
  - SKIN NECROSIS [None]
